FAERS Safety Report 6931461-1 (Version None)
Quarter: 2010Q3

REPORT INFORMATION
  Report Type: 
  Country: None (occurrence: None)
  Receive Date: 20100819
  Receipt Date: 20100811
  Transmission Date: 20110219
  Serious: Yes (Hospitalization)
  Sender: FDA-Public Use
  Company Number: US-US-EMD SERONO, INC.-7014022

PATIENT
  Sex: Female

DRUGS (3)
  1. REBIF [Suspect]
     Indication: MULTIPLE SCLEROSIS
     Route: 058
     Dates: start: 20070723, end: 20080511
  2. REBIF [Suspect]
     Route: 058
     Dates: start: 20100101, end: 20100601
  3. REBIF [Suspect]
     Route: 058
     Dates: start: 20100811

REACTIONS (4)
  - AGGRESSION [None]
  - BACK PAIN [None]
  - DEPRESSION [None]
  - NERVOUSNESS [None]
